FAERS Safety Report 5470137-7 (Version None)
Quarter: 2007Q3

REPORT INFORMATION
  Report Type: 
  Country: None (occurrence: None)
  Receive Date: 20070927
  Receipt Date: 20070918
  Transmission Date: 20080115
  Serious: Yes (Other)
  Sender: FDA-Public Use
  Company Number: NZ-PFIZER INC-2007078705

PATIENT
  Sex: Female

DRUGS (2)
  1. CHAMPIX [Suspect]
  2. MOBIC [Concomitant]

REACTIONS (5)
  - ABNORMAL DREAMS [None]
  - CONSTIPATION [None]
  - DIARRHOEA [None]
  - FATIGUE [None]
  - HAEMATOCHEZIA [None]
